FAERS Safety Report 25716317 (Version 1)
Quarter: 2025Q3

REPORT INFORMATION
  Report Type: Spontaneous
  Country: GB (occurrence: GB)
  Receive Date: 20250822
  Receipt Date: 20250822
  Transmission Date: 20251021
  Serious: Yes (Life-Threatening, Hospitalization, Disabling, Other)
  Sender: NOVO NORDISK
  Company Number: None

PATIENT
  Age: 44 Year
  Sex: Male
  Weight: 85 kg

DRUGS (14)
  1. SEMAGLUTIDE [Suspect]
     Active Substance: SEMAGLUTIDE
     Indication: Diabetes mellitus
     Dosage: 7 MG, QD
  2. PALIPERIDONE [Suspect]
     Active Substance: PALIPERIDONE
     Indication: Schizophrenia
     Dates: start: 20250630, end: 20250630
  3. METFORMIN [Concomitant]
     Active Substance: METFORMIN HYDROCHLORIDE
  4. CREON [Concomitant]
     Active Substance: PANCRELIPASE AMYLASE\PANCRELIPASE LIPASE\PANCRELIPASE PROTEASE
  5. OLANZAPINE [Concomitant]
     Active Substance: OLANZAPINE
  6. OLANZAPINE [Concomitant]
     Active Substance: OLANZAPINE
  7. FAMOTIDINE [Concomitant]
     Active Substance: FAMOTIDINE
  8. PROCYCLIDINE [Concomitant]
     Active Substance: PROCYCLIDINE
  9. DULOXETINE [Concomitant]
     Active Substance: DULOXETINE
  10. ATORVASTATIN [Concomitant]
     Active Substance: ATORVASTATIN
  11. RAMIPRIL [Concomitant]
     Active Substance: RAMIPRIL
  12. DAPAGLIFLOZIN [Concomitant]
     Active Substance: DAPAGLIFLOZIN
  13. NOVORAPID [Concomitant]
     Active Substance: INSULIN ASPART
  14. CALCIUM CARBONATE\CHOLECALCIFEROL [Concomitant]
     Active Substance: CALCIUM CARBONATE\CHOLECALCIFEROL

REACTIONS (2)
  - Pancreatitis necrotising [Not Recovered/Not Resolved]
  - Abdominal pain [Unknown]

NARRATIVE: CASE EVENT DATE: 20250727
